FAERS Safety Report 5270674-4 (Version None)
Quarter: 2007Q1

REPORT INFORMATION
  Report Type: 
  Country: None (occurrence: None)
  Receive Date: 20070321
  Receipt Date: 20070313
  Transmission Date: 20070707
  Serious: Yes (Other)
  Sender: FDA-Public Use
  Company Number: US-SP-2007-00758

PATIENT
  Age: 37 Year
  Sex: Female

DRUGS (2)
  1. TUBERSOL [Suspect]
     Indication: TUBERCULIN TEST
     Route: 023
     Dates: start: 20070306
  2. TUBERSOL [Suspect]
     Route: 023
     Dates: start: 20070306

REACTIONS (5)
  - HEADACHE [None]
  - OEDEMA PERIPHERAL [None]
  - RASH [None]
  - SWELLING FACE [None]
  - TUBERCULOSIS SKIN TEST POSITIVE [None]
